FAERS Safety Report 4678637-4 (Version None)
Quarter: 2005Q2

REPORT INFORMATION
  Report Type: 
  Country: None (occurrence: None)
  Receive Date: 20050531
  Receipt Date: 20050531
  Transmission Date: 20051028
  Serious: Yes (Other)
  Sender: FDA-Public Use
  Company Number: None

PATIENT
  Age: 52 Year
  Sex: Male
  Weight: 74.8435 kg

DRUGS (1)
  1. CRESTOR [Suspect]
     Indication: BLOOD CHOLESTEROL INCREASED
     Dosage: 1 PILL DAILY ORAL
     Route: 048
     Dates: start: 20050420, end: 20050514

REACTIONS (6)
  - ASTHENIA [None]
  - HEADACHE [None]
  - INJURY [None]
  - INSOMNIA [None]
  - MYALGIA [None]
  - WEIGHT INCREASED [None]
